FAERS Safety Report 19892940 (Version 4)
Quarter: 2022Q1

REPORT INFORMATION
  Report Type: Spontaneous
  Country: JP (occurrence: JP)
  Receive Date: 20210929
  Receipt Date: 20220201
  Transmission Date: 20220423
  Serious: Yes (Death, Other)
  Sender: FDA-Public Use
  Company Number: JP-ASTELLAS-2021JP018598

PATIENT
  Age: 65 Year
  Sex: Male

DRUGS (7)
  1. XOSPATA [Suspect]
     Active Substance: GILTERITINIB
     Indication: Acute myeloid leukaemia refractory
     Route: 048
     Dates: start: 20191219
  2. METHENOLONE [Concomitant]
     Active Substance: METHENOLONE
     Indication: Haemoglobin decreased
     Dosage: UNK UNK, UNKNOWN FREQ.
     Route: 065
     Dates: start: 20180821
  3. AZATHIOPRINE [Concomitant]
     Active Substance: AZATHIOPRINE
     Indication: Oncologic complication
     Dosage: UNK UNK, UNKNOWN FREQ.
     Route: 065
     Dates: start: 20190129
  4. AZATHIOPRINE [Concomitant]
     Active Substance: AZATHIOPRINE
     Dosage: UNK UNK, UNKNOWN FREQ.
     Route: 065
     Dates: start: 20190305
  5. AZATHIOPRINE [Concomitant]
     Active Substance: AZATHIOPRINE
     Dosage: UNK UNK, UNKNOWN FREQ.
     Route: 065
     Dates: start: 20190402
  6. AZATHIOPRINE [Concomitant]
     Active Substance: AZATHIOPRINE
     Dosage: UNK UNK, UNKNOWN FREQ.
     Route: 065
     Dates: start: 20191211
  7. LEVOFLOXACIN HEMIHYDRATE [Concomitant]
     Active Substance: LEVOFLOXACIN
     Indication: Febrile neutropenia
     Dosage: UNK UNK, UNKNOWN FREQ.
     Route: 065
     Dates: start: 20191016

REACTIONS (3)
  - Acute myeloid leukaemia [Fatal]
  - Sepsis [Fatal]
  - Therapy non-responder [Unknown]

NARRATIVE: CASE EVENT DATE: 20191223
